FAERS Safety Report 8114675-7 (Version None)
Quarter: 2012Q1

REPORT INFORMATION
  Report Type: 
  Country: None (occurrence: None)
  Receive Date: 20120206
  Receipt Date: 20120125
  Transmission Date: 20120608
  Serious: Yes (Death, Hospitalization)
  Sender: FDA-Public Use
  Company Number: FR-PFIZER INC-2012029085

PATIENT
  Age: 66 Year
  Sex: Male

DRUGS (7)
  1. CORDARONE [Suspect]
     Indication: ARRHYTHMIA
  2. PERMIXON [Concomitant]
     Indication: ARRHYTHMIA
  3. PREVISCAN [Concomitant]
     Indication: ATRIAL FIBRILLATION
     Dosage: UNK
     Dates: start: 20080101
  4. PERMIXON [Concomitant]
     Indication: ATRIAL FIBRILLATION
  5. CORDARONE [Suspect]
     Indication: ATRIAL FIBRILLATION
     Dosage: 400 MG, 1X/DAY
     Route: 048
     Dates: start: 20080101, end: 20120102
  6. PREVISCAN [Concomitant]
     Indication: ARRHYTHMIA
  7. INDAPAMIDE [Concomitant]
     Indication: HYPERTENSION

REACTIONS (3)
  - INTERSTITIAL LUNG DISEASE [None]
  - SEPSIS [None]
  - INTESTINAL ISCHAEMIA [None]
